FAERS Safety Report 7080324-2 (Version None)
Quarter: 2010Q4

REPORT INFORMATION
  Report Type: 
  Country: None (occurrence: None)
  Receive Date: 20101103
  Receipt Date: 20101027
  Transmission Date: 20110411
  Serious: Yes (Other)
  Sender: FDA-Public Use
  Company Number: GB-TEVA-253418ISR

PATIENT
  Age: 83 Year
  Sex: Female

DRUGS (2)
  1. CITALOPRAM HYDROBROMIDE [Suspect]
     Indication: ANXIETY
     Route: 048
  2. OMEPRAZOLE [Interacting]
     Indication: DYSPEPSIA
     Route: 048
     Dates: end: 20101017

REACTIONS (2)
  - ANGIOEDEMA [None]
  - DRUG INTERACTION [None]
